FAERS Safety Report 6479907-X (Version None)
Quarter: 2009Q4

REPORT INFORMATION
  Report Type: 
  Country: None (occurrence: None)
  Receive Date: 20091208
  Receipt Date: 20091109
  Transmission Date: 20100525
  Serious: Yes (Other)
  Sender: FDA-Public Use
  Company Number: US-SANOFI-AVENTIS-2009SA000975

PATIENT
  Age: 32 Year
  Sex: Female
  Weight: 86.8 kg

DRUGS (11)
  1. DEMEROL [Suspect]
     Indication: PAIN
     Route: 065
     Dates: start: 20080501, end: 20080501
  2. HUMIRA [Concomitant]
     Indication: ANKYLOSING SPONDYLITIS
     Route: 065
     Dates: start: 20061215
  3. GABAPENTIN [Concomitant]
     Indication: MULTIPLE SCLEROSIS
  4. FENTANYL [Concomitant]
     Indication: PAIN
     Route: 061
  5. AZATHIOPRINE [Concomitant]
     Indication: ANKYLOSING SPONDYLITIS
  6. AZATHIOPRINE [Concomitant]
     Indication: RHEUMATOID ARTHRITIS
  7. AZATHIOPRINE [Concomitant]
     Indication: CROHN'S DISEASE
  8. ALL OTHER THERAPEUTIC PRODUCTS [Concomitant]
     Indication: MULTIPLE SCLEROSIS
  9. TOLTERODINE [Concomitant]
     Indication: BLADDER DISORDER
  10. TOPIRAMATE [Concomitant]
  11. OMEPRAZOLE [Concomitant]

REACTIONS (2)
  - DYSARTHRIA [None]
  - PSYCHOTIC DISORDER [None]
